FAERS Safety Report 13848435 (Version 4)
Quarter: 2024Q3

REPORT INFORMATION
  Report Type: Spontaneous
  Country: US (occurrence: US)
  Receive Date: 20170809
  Receipt Date: 20240731
  Transmission Date: 20241017
  Serious: No
  Sender: PURDUE
  Company Number: US-PURDUE-USA-2017-0140025

PATIENT
  Sex: Female

DRUGS (5)
  1. BUTRANS [Suspect]
     Active Substance: BUPRENORPHINE
     Indication: Analgesic therapy
     Dosage: 20 MCG/HR, WEEKLY
     Route: 062
     Dates: start: 201705
  2. BUTRANS [Suspect]
     Active Substance: BUPRENORPHINE
     Dosage: 5 MCG/HR, WEEKLY
     Route: 062
     Dates: start: 201701
  3. BUTRANS [Suspect]
     Active Substance: BUPRENORPHINE
     Dosage: 20 MCG
     Route: 062
  4. BUTRANS [Suspect]
     Active Substance: BUPRENORPHINE
     Dosage: UNK
     Route: 062
  5. BUTRANS [Suspect]
     Active Substance: BUPRENORPHINE
     Dosage: 20 MCG
     Route: 062

REACTIONS (4)
  - Therapeutic product effect decreased [Unknown]
  - Drug ineffective [Unknown]
  - Product adhesion issue [Unknown]
  - Product quality issue [Unknown]
